FAERS Safety Report 20041866 (Version 1)
Quarter: 2021Q4

REPORT INFORMATION
  Report Type: Report from Study
  Country: US (occurrence: US)
  Receive Date: 20211108
  Receipt Date: 20211108
  Transmission Date: 20220303
  Serious: Yes (Hospitalization)
  Sender: FDA-Public Use
  Company Number: US-TAKEDA-US201816536

PATIENT
  Age: 68 Year
  Sex: Female
  Weight: 51.701 kg

DRUGS (14)
  1. TEDUGLUTIDE [Suspect]
     Active Substance: TEDUGLUTIDE
     Indication: Short-bowel syndrome
     Dosage: 999 MG (999 MG KG AND 5 DOSES PER WEEK)
     Route: 065
     Dates: start: 20140601, end: 20150101
  2. TEDUGLUTIDE [Suspect]
     Active Substance: TEDUGLUTIDE
     Indication: Short-bowel syndrome
     Dosage: 999 MG (999 MG KG AND 5 DOSES PER WEEK)
     Route: 065
     Dates: start: 20140601, end: 20150101
  3. TEDUGLUTIDE [Suspect]
     Active Substance: TEDUGLUTIDE
     Indication: Short-bowel syndrome
     Dosage: 999 MG (999 MG KG AND 5 DOSES PER WEEK)
     Route: 065
     Dates: start: 20140601, end: 20150101
  4. TEDUGLUTIDE [Suspect]
     Active Substance: TEDUGLUTIDE
     Indication: Short-bowel syndrome
     Dosage: 999 MG (999 MG KG AND 5 DOSES PER WEEK)
     Route: 065
     Dates: start: 20140601, end: 20150101
  5. TEDUGLUTIDE [Suspect]
     Active Substance: TEDUGLUTIDE
     Dosage: 5 MG (0.05 MG KG AND 7 DOSES PER WEEK)
     Route: 065
     Dates: start: 20160406
  6. TEDUGLUTIDE [Suspect]
     Active Substance: TEDUGLUTIDE
     Dosage: 5 MG (0.05 MG KG AND 7 DOSES PER WEEK)
     Route: 065
     Dates: start: 20160406
  7. TEDUGLUTIDE [Suspect]
     Active Substance: TEDUGLUTIDE
     Dosage: 5 MG (0.05 MG KG AND 7 DOSES PER WEEK)
     Route: 065
     Dates: start: 20160406
  8. TEDUGLUTIDE [Suspect]
     Active Substance: TEDUGLUTIDE
     Dosage: 5 MG (0.05 MG KG AND 7 DOSES PER WEEK)
     Route: 065
     Dates: start: 20160406
  9. PEPTAMEN AF [Concomitant]
     Indication: Product used for unknown indication
  10. VALSARTAN [Concomitant]
     Active Substance: VALSARTAN
     Indication: Hypertension
  11. AMLODIPINE [Concomitant]
     Active Substance: AMLODIPINE BESYLATE
     Indication: Hypertension
     Dosage: 5 MILLIGRAM, QD
     Route: 048
     Dates: start: 201906
  12. ANUCORT-HC [Concomitant]
     Active Substance: HYDROCORTISONE ACETATE
     Dosage: 25 MILLIGRAM, BID
     Route: 054
     Dates: start: 20190110
  13. MACROBID [Concomitant]
     Active Substance: NITROFURANTOIN\NITROFURANTOIN MONOHYDRATE
     Indication: Urinary tract infection
     Dosage: 100 MILLIGRAM, Q12H
     Route: 048
     Dates: start: 20190617, end: 20190619
  14. VIVONEX T.E.N. [Concomitant]
     Dosage: 60 MILLILITER, Q1HR
     Route: 042
     Dates: start: 201803

REACTIONS (2)
  - Abdominal pain [Recovered/Resolved]
  - Diarrhoea [Recovered/Resolved]

NARRATIVE: CASE EVENT DATE: 20180201
